FAERS Safety Report 8789705 (Version 2)
Quarter: 2013Q1

REPORT INFORMATION
  Report Type: Spontaneous
  Country: JP (occurrence: None)
  Receive Date: 20120906
  Receipt Date: 20121218
  Transmission Date: 20140127
  Serious: Yes (Life-Threatening, Hospitalization, Disabling, Other)
  Sender: FDA-Public Use
  Company Number: DSJ-2012-15376

PATIENT
  Age: 74 Year
  Sex: Male

DRUGS (1)
  1. OLMETEC (OLMESARTAN MEDOXOMIL) (TABLET) (OLMESARTAN MEDOXOMIL) [Suspect]
     Indication: ESSENTIAL HYPERTENSION
     Route: 048
     Dates: start: 20100313, end: 20110324

REACTIONS (2)
  - Embolic stroke [None]
  - Atrial fibrillation [None]
